FAERS Safety Report 6497652-1 (Version None)
Quarter: 2009Q4

REPORT INFORMATION
  Report Type: 
  Country: None (occurrence: None)
  Receive Date: 20091215
  Receipt Date: 20091207
  Transmission Date: 20100525
  Serious: Yes (Death)
  Sender: FDA-Public Use
  Company Number: KR-ROCHE-673890

PATIENT
  Sex: Female
  Weight: 44.5 kg

DRUGS (6)
  1. CAPECITABINE [Suspect]
     Route: 048
     Dates: start: 20080820, end: 20081113
  2. GEMCITABINE [Suspect]
     Route: 042
     Dates: start: 20080820, end: 20081031
  3. ITOPRIDE [Concomitant]
     Indication: DYSPEPSIA
     Route: 048
     Dates: start: 20080812, end: 20081127
  4. URSODESOXYCHOLIC ACID [Concomitant]
     Route: 048
     Dates: start: 20080812, end: 20081127
  5. FENTANYL [Concomitant]
     Indication: ANALGESIC THERAPY
     Dates: start: 20080903, end: 20081127
  6. OXYCODONE [Concomitant]
     Indication: ANALGESIC THERAPY
     Route: 048
     Dates: start: 20080811, end: 20081120

REACTIONS (2)
  - MALIGNANT NEOPLASM PROGRESSION [None]
  - SKIN EXFOLIATION [None]
